FAERS Safety Report 20449195 (Version 1)
Quarter: 2022Q1

REPORT INFORMATION
  Report Type: Spontaneous
  Country: US (occurrence: US)
  Receive Date: 20220209
  Receipt Date: 20220209
  Transmission Date: 20220423
  Serious: No
  Sender: FDA-Public Use
  Company Number: US-TEVA-2022-US-1999576

PATIENT
  Sex: Female

DRUGS (2)
  1. ADIPEX-P [Suspect]
     Active Substance: PHENTERMINE HYDROCHLORIDE
     Indication: Appetite disorder
     Dosage: AS NEEDED OVER THE LAST 10 YEARS
     Route: 065
  2. PHENTERMINE [Suspect]
     Active Substance: PHENTERMINE
     Route: 065

REACTIONS (6)
  - Hunger [Not Recovered/Not Resolved]
  - Hyperphagia [Unknown]
  - Heart rate irregular [Unknown]
  - Drug ineffective [Unknown]
  - Product prescribing error [Unknown]
  - Product availability issue [Unknown]

NARRATIVE: CASE EVENT DATE: 20211201
